FAERS Safety Report 22079505 (Version 1)
Quarter: 2023Q1

REPORT INFORMATION
  Report Type: Spontaneous
  Country: US (occurrence: None)
  Receive Date: 20230309
  Receipt Date: 20230309
  Transmission Date: 20230417
  Serious: Yes (Other)
  Sender: FDA-Public Use
  Company Number: 2023A052137

PATIENT
  Sex: Male

DRUGS (26)
  1. NEXIUM [Suspect]
     Active Substance: ESOMEPRAZOLE MAGNESIUM
     Route: 048
  2. SODIUM CHLORIDE [Concomitant]
     Active Substance: SODIUM CHLORIDE
  3. FAMOTIDINE [Concomitant]
     Active Substance: FAMOTIDINE
  4. ERTAPENEM [Concomitant]
     Active Substance: ERTAPENEM
  5. DIPHENHYDRAMINE [Concomitant]
     Active Substance: DIPHENHYDRAMINE
  6. DEXAMETHASONE [Concomitant]
     Active Substance: DEXAMETHASONE
  7. GRANISETRON [Concomitant]
     Active Substance: GRANISETRON
  8. VANCOMYCIN [Concomitant]
     Active Substance: VANCOMYCIN
  9. PACLITAXEL [Concomitant]
     Active Substance: PACLITAXEL
  10. CARBOPLATIN [Concomitant]
     Active Substance: CARBOPLATIN
  11. HYDROCORTISONE [Concomitant]
     Active Substance: HYDROCORTISONE
  12. AMLODIPINE [Concomitant]
     Active Substance: AMLODIPINE BESYLATE
  13. METRONIDAZOLE [Concomitant]
     Active Substance: METRONIDAZOLE
  14. CIPROFLOXACIN [Concomitant]
     Active Substance: CIPROFLOXACIN
  15. PANTOPRAZOLE [Concomitant]
     Active Substance: PANTOPRAZOLE
  16. LOSARTAN [Concomitant]
     Active Substance: LOSARTAN
  17. PRAVASTATIN [Concomitant]
     Active Substance: PRAVASTATIN
  18. SUCRALFATE [Concomitant]
     Active Substance: SUCRALFATE
  19. DOXAZOSIN [Concomitant]
     Active Substance: DOXAZOSIN MESYLATE
  20. PROCALCITONIN [Concomitant]
  21. MAGNESIUM [Concomitant]
     Active Substance: MAGNESIUM
  22. FOLIC ACID [Concomitant]
     Active Substance: FOLIC ACID
  23. ZOFRAN [Concomitant]
     Active Substance: ONDANSETRON HYDROCHLORIDE
  24. MIRALAX [Concomitant]
     Active Substance: POLYETHYLENE GLYCOL 3350
  25. FLUVIRIN NOS [Concomitant]
     Active Substance: INFLUENZA VIRUS VACCINE
  26. FLUCELVAX NOS [Concomitant]
     Active Substance: INFLUENZA A VIRUS A/BRISBANE/10/2010 (H1N1) ANTIGEN (MDCK CELL DERIVED, PROPIOLACTONE INACTIVATED)\I

REACTIONS (1)
  - Gastric cancer [Unknown]
